FAERS Safety Report 7071792-0 (Version None)
Quarter: 2010Q4

REPORT INFORMATION
  Report Type: 
  Country: None (occurrence: None)
  Receive Date: 20101029
  Receipt Date: 20091022
  Transmission Date: 20110411
  Serious: No
  Sender: FDA-Public Use
  Company Number: A0812987A

PATIENT
  Age: 42 Year
  Sex: Female

DRUGS (4)
  1. ADVAIR DISKUS 100/50 [Suspect]
     Dosage: 1PUFF PER DAY
     Route: 055
     Dates: start: 20090901, end: 20090901
  2. SINGULAIR [Concomitant]
  3. DIAVAN [Concomitant]
  4. MULTI-VITAMIN [Concomitant]

REACTIONS (4)
  - CHEST DISCOMFORT [None]
  - COUGH [None]
  - MUSCULOSKELETAL PAIN [None]
  - MYALGIA [None]
